FAERS Safety Report 12407371 (Version 1)
Quarter: 2016Q2

REPORT INFORMATION
  Report Type: Report from Study
  Country: TW (occurrence: TW)
  Receive Date: 20160526
  Receipt Date: 20160526
  Transmission Date: 20160815
  Serious: No
  Sender: FDA-Public Use
  Company Number: PHHY2015TW118100

PATIENT
  Sex: Female
  Weight: 65 kg

DRUGS (1)
  1. TASIGNA [Suspect]
     Active Substance: NILOTINIB
     Indication: CHRONIC MYELOID LEUKAEMIA
     Dosage: 300 MG, QD
     Route: 048
     Dates: start: 201501

REACTIONS (3)
  - Normal newborn [Unknown]
  - Maternal exposure during pregnancy [Unknown]
  - Delivery [Unknown]
